FAERS Safety Report 24071961 (Version 5)
Quarter: 2025Q1

REPORT INFORMATION
  Report Type: Spontaneous
  Country: US (occurrence: US)
  Receive Date: 20240710
  Receipt Date: 20250220
  Transmission Date: 20250408
  Serious: No
  Sender: BRISTOL-MYERS SQUIBB COMPANY
  Company Number: US-BRISTOL-MYERS SQUIBB COMPANY-2024-109213

PATIENT
  Age: 57 Year
  Sex: Male
  Weight: 89.81 kg

DRUGS (2)
  1. POMALYST [Suspect]
     Active Substance: POMALIDOMIDE
     Indication: Plasma cell myeloma
     Route: 048
     Dates: end: 20241015
  2. POMALYST [Suspect]
     Active Substance: POMALIDOMIDE
     Route: 048

REACTIONS (5)
  - Constipation [Recovering/Resolving]
  - Pain [Unknown]
  - Illness [Recovered/Resolved]
  - Product dose omission issue [Unknown]
  - Diarrhoea [Recovering/Resolving]
